FAERS Safety Report 21980290 (Version 1)
Quarter: 2023Q1

REPORT INFORMATION
  Report Type: Report from Study
  Country: US (occurrence: US)
  Receive Date: 20230210
  Receipt Date: 20230210
  Transmission Date: 20230418
  Serious: No
  Sender: FDA-Public Use
  Company Number: US-002147023-NVSC2023US027964

PATIENT
  Sex: Female

DRUGS (2)
  1. COSENTYX [Suspect]
     Active Substance: SECUKINUMAB
     Indication: Psoriasis
     Dosage: 300 MG, EVERY 4 WEEKS
     Route: 061
  2. SULFACETAMIDE [Suspect]
     Active Substance: SULFACETAMIDE
     Indication: Acne
     Dosage: UNK (10 %)
     Route: 061

REACTIONS (3)
  - Hyperhidrosis [Recovering/Resolving]
  - Low density lipoprotein abnormal [Unknown]
  - Eosinophil count abnormal [Unknown]
